FAERS Safety Report 8159011-5 (Version None)
Quarter: 2012Q1

REPORT INFORMATION
  Report Type: 
  Country: None (occurrence: None)
  Receive Date: 20120217
  Receipt Date: 20120209
  Transmission Date: 20120608
  Serious: Yes (Other)
  Sender: FDA-Public Use
  Company Number: 2012MA001879

PATIENT
  Age: 50 Year
  Sex: Female

DRUGS (5)
  1. PREDNISONE [Concomitant]
  2. LEVETIRACETAM EXTENDED RELEASE TABLETS 500MG (AELLC) [Suspect]
     Indication: EPILEPSY
     Dosage: 1500 MG;HS;PO
     Route: 048
     Dates: start: 20120101, end: 20120207
  3. PROZAC [Concomitant]
  4. KEPPRA [Concomitant]
  5. NEXIUM [Concomitant]

REACTIONS (1)
  - CONVULSION [None]
